FAERS Safety Report 5196507-2 (Version None)
Quarter: 2006Q4

REPORT INFORMATION
  Report Type: 
  Country: None (occurrence: None)
  Receive Date: 20061227
  Receipt Date: 20061212
  Transmission Date: 20070319
  Serious: Yes (Life-Threatening, Hospitalization)
  Sender: FDA-Public Use
  Company Number: GXKR2006GB08147

PATIENT
  Age: 41 Year
  Sex: Male

DRUGS (2)
  1. CITALOPRAM HYDROBROMIDE [Suspect]
     Dosage: 20 MG, QD, ORAL
     Route: 048
     Dates: start: 20061109, end: 20061113
  2. DISULFIRAM [Concomitant]

REACTIONS (2)
  - CONVULSION [None]
  - MALAISE [None]
